FAERS Safety Report 9300391 (Version 1)
Quarter: 2012Q4

REPORT INFORMATION
  Report Type: Spontaneous
  Country: US (occurrence: None)
  Receive Date: 20121022
  Receipt Date: 20121022
  Transmission Date: 20130627
  Serious: Yes (Other)
  Sender: FDA-Public Use
  Company Number: 2011MA002463

PATIENT
  Sex: Female
  Weight: 47.17 kg

DRUGS (62)
  1. METOCLOPRAMIDE TABLETS USP, 10 MG (PUREPAC) [Suspect]
     Indication: MIGRAINE
     Dates: start: 20050501, end: 20100525
  2. METOCLOPRAMIDE TABLETS USP, 10 MG (PUREPAC) [Suspect]
     Indication: NAUSEA
     Dates: start: 20050501, end: 20100525
  3. ADVAIR [Concomitant]
  4. ALPRAZOLAM [Concomitant]
  5. AMOXICILLIN [Concomitant]
  6. AUGMENTIN [Concomitant]
  7. AXERT [Concomitant]
  8. AZITHROMYCIN [Concomitant]
  9. BOTOX [Concomitant]
  10. BUPROPION [Concomitant]
  11. BUTALBITAL/ASPIRIN/CAFFEINE/CODEINE [Concomitant]
  12. BUSPIRONE [Concomitant]
  13. CHERATUSSIN AC [Concomitant]
  14. CITALOPRAM [Concomitant]
  15. CLONAZEPAM [Concomitant]
  16. CYCLOBENZAPRINE [Concomitant]
  17. CYPROHEPTADINE [Concomitant]
  18. DIAZEPAM [Concomitant]
  19. DICLOFENAC [Concomitant]
  20. DICYCLOMINE [Concomitant]
  21. DIPHENHYDRAMINE [Concomitant]
  22. DOC-Q-LACE [Concomitant]
  23. DOXYCYCLINE [Concomitant]
  24. EFFEXOR [Concomitant]
  25. FENTANYL [Concomitant]
  26. FLUCONAZOLE [Concomitant]
  27. FLUTICASONE [Concomitant]
  28. FROVA [Concomitant]
  29. GABAPENTIN [Concomitant]
  30. GEOGON [Concomitant]
  31. HYDROCODONE [Concomitant]
  32. HYDROMORPHONE [Concomitant]
  33. IBUPROFEN [Concomitant]
  34. KEPPRA [Concomitant]
  35. LAMICTAL [Concomitant]
  36. LAMOTRIGINE [Concomitant]
  37. LEVAQUIN [Concomitant]
  38. LORATADINE [Concomitant]
  39. METHADONE [Concomitant]
  40. METRONIDAZOLE [Concomitant]
  41. NAPROXEN [Concomitant]
  42. NOTRIPTYLINE [Concomitant]
  43. OMEPRAZOLE [Concomitant]
  44. ONDANSETRON [Concomitant]
  45. OXYCODONE/APAP [Concomitant]
  46. PREDNISONE [Concomitant]
  47. PROAIR [Concomitant]
  48. PROMETHAZINE [Concomitant]
  49. PROMETHEGAN [Concomitant]
  50. PROPRANOLOL [Concomitant]
  51. Q-TUSSIN DM [Concomitant]
  52. RANITIDINE [Concomitant]
  53. REQUIP [Concomitant]
  54. SEROQUEL [Concomitant]
  55. SULFAMETH/TRIMETHOPRIM [Concomitant]
  56. TOPAMAX [Concomitant]
  57. TRAMADOL [Concomitant]
  58. TRAZODONE [Concomitant]
  59. VENTOLIN [Concomitant]
  60. VERAPAMIL [Concomitant]
  61. ZOLPIDEM [Concomitant]
  62. ZONEGRAN [Concomitant]

REACTIONS (16)
  - Muscle twitching [None]
  - Dyskinesia [None]
  - Dyskinesia [None]
  - Headache [None]
  - Neck pain [None]
  - Muscle spasms [None]
  - Panic attack [None]
  - Mania [None]
  - Tardive dyskinesia [None]
  - Tremor [None]
  - Visual impairment [None]
  - Convulsion [None]
  - Balance disorder [None]
  - Exostosis [None]
  - Temporomandibular joint syndrome [None]
  - Intervertebral disc space narrowing [None]
